FAERS Safety Report 15571749 (Version 6)
Quarter: 2019Q3

REPORT INFORMATION
  Report Type: Spontaneous
  Country: GR (occurrence: GR)
  Receive Date: 20181031
  Receipt Date: 20190823
  Transmission Date: 20191004
  Serious: Yes (Death, Hospitalization, Other)
  Sender: FDA-Public Use
  Company Number: GR-MYLANLABS-2018M1073159

PATIENT
  Age: 76 Year
  Sex: Female

DRUGS (3)
  1. DICLOFENAC [Suspect]
     Active Substance: DICLOFENAC
     Indication: ANTIINFLAMMATORY THERAPY
     Dosage: 50 MILLIGRAM, BID (100 MG, QD)
     Route: 048
  2. QUINAPRIL. [Concomitant]
     Active Substance: QUINAPRIL
     Indication: HYPERTENSION
     Dosage: UNK
     Route: 065
  3. DICLOFENAC [Suspect]
     Active Substance: DICLOFENAC
     Indication: MUSCULOSKELETAL PAIN
     Dosage: 50 MILLIGRAM, BID (50 MG, QD)
     Route: 065

REACTIONS (12)
  - Encephalopathy [Fatal]
  - Hepatosplenomegaly [Fatal]
  - Jaundice [Fatal]
  - Hepatic encephalopathy [Fatal]
  - Vomiting [Fatal]
  - Acute hepatic failure [Fatal]
  - Autoimmune hepatitis [Fatal]
  - Abdominal pain [Fatal]
  - Gastric haemorrhage [Fatal]
  - Back pain [Fatal]
  - Nausea [Fatal]
  - Upper gastrointestinal haemorrhage [Fatal]
